FAERS Safety Report 5511984-2 (Version None)
Quarter: 2007Q4

REPORT INFORMATION
  Report Type: 
  Country: None (occurrence: None)
  Receive Date: 20071109
  Receipt Date: 20071106
  Transmission Date: 20080405
  Serious: Yes (Life-Threatening, Hospitalization, Disabling)
  Sender: FDA-Public Use
  Company Number: US-MERCK-0710USA05857

PATIENT
  Age: 51 Year
  Sex: Male
  Weight: 271 kg

DRUGS (1)
  1. INVANZ [Suspect]
     Indication: GROIN INFECTION
     Route: 042
     Dates: start: 20071005, end: 20071007

REACTIONS (3)
  - DRUG INEFFECTIVE [None]
  - RESPIRATORY FAILURE [None]
  - SEPSIS [None]
